FAERS Safety Report 7670238-9 (Version None)
Quarter: 2011Q3

REPORT INFORMATION
  Report Type: 
  Country: None (occurrence: None)
  Receive Date: 20110808
  Receipt Date: 20110804
  Transmission Date: 20111222
  Serious: Yes (Other)
  Sender: FDA-Public Use
  Company Number: US-AMGEN-USASP2011036843

PATIENT
  Age: 59 Year
  Sex: Female

DRUGS (1)
  1. ENBREL [Suspect]
     Indication: RHEUMATOID ARTHRITIS
     Dosage: 50 MG, QWK
     Dates: start: 20091002, end: 20110706

REACTIONS (7)
  - FALL [None]
  - MUSCULOSKELETAL PAIN [None]
  - FATIGUE [None]
  - FRACTURED COCCYX [None]
  - PAIN [None]
  - PAIN IN EXTREMITY [None]
  - RADIUS FRACTURE [None]
